FAERS Safety Report 23530461 (Version 1)
Quarter: 2024Q1

REPORT INFORMATION
  Report Type: Spontaneous
  Country: US (occurrence: US)
  Receive Date: 20240216
  Receipt Date: 20240216
  Transmission Date: 20240410
  Serious: Yes (Disabling)
  Sender: FDA-Public Use
  Company Number: US-BSC-2024000001

PATIENT

DRUGS (2)
  1. VARITHENA [Suspect]
     Active Substance: POLIDOCANOL
     Indication: Peripheral venous disease
     Dosage: LOCATION: RIGHT LEG
     Dates: start: 20220418
  2. VARITHENA [Suspect]
     Active Substance: POLIDOCANOL
     Indication: Peripheral venous disease
     Dosage: LOCATION: LEFT LEG
     Dates: start: 20220429

REACTIONS (9)
  - Quality of life decreased [Unknown]
  - Poor peripheral circulation [Unknown]
  - Muscle spasms [Not Recovered/Not Resolved]
  - Swelling [Not Recovered/Not Resolved]
  - Cellulitis [Unknown]
  - COVID-19 [Unknown]
  - Superficial vein thrombosis [Unknown]
  - Discomfort [Unknown]
  - Pain [Not Recovered/Not Resolved]

NARRATIVE: CASE EVENT DATE: 20220418
